FAERS Safety Report 6103057-5 (Version None)
Quarter: 2009Q1

REPORT INFORMATION
  Report Type: 
  Country: None (occurrence: None)
  Receive Date: 20090305
  Receipt Date: 20090303
  Transmission Date: 20090719
  Serious: Yes (Other)
  Sender: FDA-Public Use
  Company Number: US-BAYER-200910370NA

PATIENT
  Age: 56 Year
  Sex: Male
  Weight: 91 kg

DRUGS (6)
  1. CIPRO [Suspect]
     Indication: PROSTATIC OPERATION
     Route: 065
     Dates: start: 20080101
  2. CIPRO [Suspect]
     Route: 065
     Dates: start: 20080601
  3. LEVAQUIN [Suspect]
  4. SINGULAIR [Concomitant]
  5. ALLEGRA [Concomitant]
  6. DOXAZOSIN MESYLATE [Concomitant]

REACTIONS (5)
  - HYPOAESTHESIA [None]
  - MUSCLE SPASTICITY [None]
  - MUSCULAR WEAKNESS [None]
  - NEUROPATHY PERIPHERAL [None]
  - PAIN IN EXTREMITY [None]
